FAERS Safety Report 19594196 (Version 2)
Quarter: 2022Q4

REPORT INFORMATION
  Report Type: Spontaneous
  Country: DE (occurrence: DE)
  Receive Date: 20210722
  Receipt Date: 20221202
  Transmission Date: 20230113
  Serious: Yes (Hospitalization)
  Sender: FDA-Public Use
  Company Number: None

PATIENT
  Age: 68 Year
  Sex: Male
  Weight: 62 kg

DRUGS (12)
  1. FLUOROURACIL [Suspect]
     Active Substance: FLUOROURACIL
     Indication: Product used for unknown indication
     Dosage: ACCORDING TO THE SCHEME, SOLUTION FOR INJECTION / INFUSION
     Route: 042
  2. IRINOTECAN [Suspect]
     Active Substance: IRINOTECAN
     Indication: Product used for unknown indication
     Dosage: ACCORDING TO THE SCHEME, SOLUTION FOR INJECTION / INFUSION
  3. OXALIPLATIN [Suspect]
     Active Substance: OXALIPLATIN
     Indication: Product used for unknown indication
     Dosage: ACCORDING TO THE SCHEME, SOLUTION FOR INJECTION/INFUSION
  4. CANDESARTAN CILEXETIL [Concomitant]
     Active Substance: CANDESARTAN CILEXETIL
     Dosage: COMP. 16MG / 12.5MG?,16/12.5 MG, 1-0-0-0,  TABLET
  5. LEUCOVORIN CALCIUM [Concomitant]
     Active Substance: LEUCOVORIN CALCIUM
     Dosage: ACCORDING TO THE SCHEME, SOLUTION FOR INJECTION / INFUSION
     Route: 042
  6. TOUJEO [Concomitant]
     Active Substance: INSULIN GLARGINE
     Dosage: 300 UNITS / ML SOLOSTAR 1.5ML PEN, 0-0-0-6, SOLUTION FOR INJECTION / INFUSION
  7. LIPEGFILGRASTIM [Concomitant]
     Active Substance: LIPEGFILGRASTIM
     Dosage: ACCORDING TO THE SCHEME, INJECTION / INFUSION SOLUTION
  8. LOPERAMIDE [Concomitant]
     Active Substance: LOPERAMIDE
     Dosage: AL ACUTE, IF NECESSARY, TABLET
  9. PANTOPRAZOLE [Concomitant]
     Active Substance: PANTOPRAZOLE
     Dosage: 40 MG, 1-0-0-0,  TABLET
  10. NOVORAPID [Concomitant]
     Active Substance: INSULIN ASPART
     Dosage: 1000U. 100U./ML, ACCORDING TO THE SCHEME, SOLUTION FOR INJECTION / INFUSION
  11. CREON [Concomitant]
     Active Substance: PANCRELIPASE AMYLASE\PANCRELIPASE LIPASE\PANCRELIPASE PROTEASE
     Dosage: 25000U, 1-1-1-0, CAPSULES
  12. ENOXAPARIN [Concomitant]
     Active Substance: ENOXAPARIN
     Dosage: 0.4 ML, 0-0-1-0, SOLUTION FOR INJECTION / INFUSION

REACTIONS (3)
  - Fatigue [Unknown]
  - Pyrexia [Unknown]
  - Infection [Unknown]
